FAERS Safety Report 19464675 (Version 2)
Quarter: 2021Q2

REPORT INFORMATION
  Report Type: Spontaneous
  Country: US (occurrence: US)
  Receive Date: 20210626
  Receipt Date: 20210626
  Transmission Date: 20210717
  Serious: Yes (Hospitalization, Other)
  Sender: FDA-Public Use
  Company Number: US-INDOCO-000207

PATIENT
  Sex: Male

DRUGS (1)
  1. OLANZAPINE. [Suspect]
     Active Substance: OLANZAPINE
     Indication: PSYCHOTIC DISORDER
     Dosage: THIRTY?ONE 10?MG TABLETS

REACTIONS (3)
  - Toxicity to various agents [Unknown]
  - Anticholinergic syndrome [Recovered/Resolved]
  - Overdose [Unknown]
